FAERS Safety Report 11008096 (Version 1)
Quarter: 2015Q2

REPORT INFORMATION
  Report Type: Spontaneous
  Country: US (occurrence: US)
  Receive Date: 20150410
  Receipt Date: 20150410
  Transmission Date: 20150821
  Serious: No
  Sender: FDA-Public Use
  Company Number: US-009507513-1503USA005647

PATIENT
  Age: 21 Year
  Sex: Female
  Weight: 119.73 kg

DRUGS (2)
  1. IMPLANON [Suspect]
     Active Substance: ETONOGESTREL
     Indication: THROMBOSIS PROPHYLAXIS
     Dosage: 1 ROD FOR 3 YEARS, RIGHT ARM
     Route: 059
     Dates: start: 201201
  2. LOVENOX [Concomitant]
     Active Substance: ENOXAPARIN SODIUM

REACTIONS (4)
  - Incorrect drug administration duration [Unknown]
  - Implant site hypoaesthesia [Not Recovered/Not Resolved]
  - Drug administration error [Unknown]
  - Implant site pain [Not Recovered/Not Resolved]

NARRATIVE: CASE EVENT DATE: 201201
